FAERS Safety Report 8908485 (Version 1)
Quarter: 2012Q4

REPORT INFORMATION
  Report Type: 
  Country: US (occurrence: US)
  Receive Date: 20121114
  Receipt Date: 20121114
  Transmission Date: 20130627
  Serious: No
  Sender: FDA-Public Use
  Company Number: US-PFIZER INC-2012282555

PATIENT

DRUGS (3)
  1. LYRICA [Suspect]
     Dosage: 75 mg
  2. LYRICA [Suspect]
     Dosage: 100 mg, 4x/day
  3. LYRICA [Suspect]
     Dosage: 25 mg, 4x/day

REACTIONS (1)
  - Rash [Unknown]
